FAERS Safety Report 6140036-6 (Version None)
Quarter: 2009Q2

REPORT INFORMATION
  Report Type: 
  Country: None (occurrence: None)
  Receive Date: 20090401
  Receipt Date: 20090317
  Transmission Date: 20091009
  Serious: Yes (Other)
  Sender: FDA-Public Use
  Company Number: JP-JNJFOC-20090303594

PATIENT

DRUGS (1)
  1. RISPERDAL [Suspect]
     Indication: BEHAVIOURAL AND PSYCHIATRIC SYMPTOMS OF DEMENTIA
     Route: 048

REACTIONS (3)
  - CEREBRAL INFARCTION [None]
  - FALL [None]
  - GAIT DISTURBANCE [None]
